FAERS Safety Report 14988007 (Version 1)
Quarter: 2018Q2

REPORT INFORMATION
  Report Type: Spontaneous
  Country: US (occurrence: US)
  Receive Date: 20180519
  Receipt Date: 20180519
  Transmission Date: 20180711
  Serious: Yes (Other)
  Sender: FDA-Public Use
  Company Number: None

PATIENT
  Age: 33 Year
  Sex: Female

DRUGS (1)
  1. OLOPATADINE HYDROCHLORIDE OPHTHALMIC SOLUTION 5ML 0.1% [Suspect]
     Active Substance: OLOPATADINE HYDROCHLORIDE
     Indication: CONJUNCTIVITIS ALLERGIC
     Dosage: ?          QUANTITY:1 GTT DROP(S);?
     Route: 047

REACTIONS (3)
  - Injury associated with device [None]
  - Eye injury [None]
  - Corneal abrasion [None]

NARRATIVE: CASE EVENT DATE: 20180518
